FAERS Safety Report 5956365-2 (Version None)
Quarter: 2008Q4

REPORT INFORMATION
  Report Type: 
  Country: None (occurrence: None)
  Receive Date: 20081118
  Receipt Date: 20081108
  Transmission Date: 20090506
  Serious: Yes (Other)
  Sender: FDA-Public Use
  Company Number: US-AVENTIS-200816603US

PATIENT
  Sex: Male

DRUGS (4)
  1. LANTUS [Suspect]
     Route: 058
  2. LANTUS [Suspect]
     Dosage: DOSE: STARTED A T 5 U, INCREASED BY 2 U  UNTIL BS UNDER 140, NOW AT 18 U
     Route: 058
  3. LANTUS [Suspect]
     Route: 058
     Dates: start: 20080923
  4. ACTOS [Concomitant]
     Dosage: DOSE QUANTITY: 15

REACTIONS (2)
  - BLOOD GLUCOSE INCREASED [None]
  - LOSS OF CONSCIOUSNESS [None]
